FAERS Safety Report 22654647 (Version 1)
Quarter: 2023Q2

REPORT INFORMATION
  Report Type: Spontaneous
  Country: US (occurrence: None)
  Receive Date: 20230628
  Receipt Date: 20230628
  Transmission Date: 20230721
  Serious: No
  Sender: FDA-Public Use
  Company Number: None

PATIENT
  Age: 30 Year
  Sex: Female
  Weight: 66.6 kg

DRUGS (2)
  1. ARIPIPRAZOLE [Suspect]
     Active Substance: ARIPIPRAZOLE
     Dosage: OTHER QUANTITY : 1 TABLET(S);?FREQUENCY : DAILY;?
     Route: 048
     Dates: start: 20220726, end: 20220727
  2. WOMEN^S MULTI VITSMIN SUPPLEMENT-SHAKLEES [Concomitant]

REACTIONS (3)
  - Tachyphrenia [None]
  - Emotional disorder [None]
  - Movement disorder [None]

NARRATIVE: CASE EVENT DATE: 20220726
